FAERS Safety Report 8075096-9 (Version None)
Quarter: 2012Q1

REPORT INFORMATION
  Report Type: 
  Country: None (occurrence: None)
  Receive Date: 20120127
  Receipt Date: 20120120
  Transmission Date: 20120608
  Serious: No
  Sender: FDA-Public Use
  Company Number: US-BIOGENIDEC-2012BI002564

PATIENT
  Age: 55 Year
  Sex: Female

DRUGS (2)
  1. TYSABRI [Suspect]
     Indication: MULTIPLE SCLEROSIS
     Route: 042
     Dates: start: 20100823, end: 20101129
  2. TYSABRI [Suspect]
     Route: 042
     Dates: start: 20111212

REACTIONS (2)
  - URINE ODOUR ABNORMAL [None]
  - URINARY TRACT INFECTION [None]
